FAERS Safety Report 13910133 (Version 1)
Quarter: 2017Q3

REPORT INFORMATION
  Report Type: Spontaneous
  Country: US (occurrence: None)
  Receive Date: 20170822
  Receipt Date: 20170822
  Transmission Date: 20171127
  Serious: No
  Sender: FDA-Public Use
  Company Number: None

PATIENT
  Age: 65 Year
  Sex: Male
  Weight: 140.9 kg

DRUGS (1)
  1. DABIGATRAN [Suspect]
     Active Substance: DABIGATRAN
     Indication: ATRIAL FIBRILLATION
     Route: 048
     Dates: start: 20120223, end: 20120815

REACTIONS (4)
  - Chest pain [None]
  - Gastrooesophageal reflux disease [None]
  - Dysphagia [None]
  - Dizziness [None]

NARRATIVE: CASE EVENT DATE: 20120815
